FAERS Safety Report 7352876-6 (Version None)
Quarter: 2011Q1

REPORT INFORMATION
  Report Type: 
  Country: None (occurrence: None)
  Receive Date: 20110315
  Receipt Date: 20110308
  Transmission Date: 20110831
  Serious: Yes (Death, Other)
  Sender: FDA-Public Use
  Company Number: US-JNJFOC-20110304426

PATIENT
  Age: 36 Year
  Sex: Male

DRUGS (24)
  1. LANSOPRAZOLE [Concomitant]
     Route: 065
  2. METOCLOPRAMIDE HCL [Concomitant]
     Route: 065
  3. TRAMADOL HCL [Suspect]
     Indication: PRODUCT USED FOR UNKNOWN INDICATION
     Dosage: 1 TO 2 TABLETS AS NEEDED
     Route: 048
  4. VENLAFAXINE [Interacting]
     Indication: PRODUCT USED FOR UNKNOWN INDICATION
     Dosage: IN 1 DAY
     Route: 065
  5. VENLAFAXINE [Interacting]
     Dosage: IN 1 DAY
     Route: 065
  6. FUROSEMIDE [Concomitant]
     Route: 065
  7. VITAMIN B [Concomitant]
     Route: 065
  8. THIAMINE [Concomitant]
     Route: 065
  9. FOLIC ACID [Concomitant]
     Route: 065
  10. TRAZODONE [Interacting]
     Indication: PRODUCT USED FOR UNKNOWN INDICATION
     Dosage: IN 1 DAY
     Route: 065
  11. ACETAMINOPHEN [Concomitant]
     Route: 065
  12. METOPROLOL [Concomitant]
     Route: 065
  13. LORAZEPAM [Concomitant]
     Route: 065
  14. ENALAPRIL MALEATE [Concomitant]
     Route: 065
  15. BENZONATATE [Concomitant]
     Route: 065
  16. LITHIUM [Concomitant]
     Route: 065
  17. RANITIDINE [Concomitant]
     Route: 065
  18. QUETIAPINE [Interacting]
     Indication: PRODUCT USED FOR UNKNOWN INDICATION
     Dosage: 100 TO 150 MG EVERY DAY
     Route: 065
  19. TRAZODONE [Interacting]
     Dosage: IN 1 DAY
     Route: 065
  20. PROMETHAZINE [Concomitant]
     Route: 065
  21. DOCUSATE SODIUM [Concomitant]
     Route: 065
  22. CHLORDIAZEPOXIDE [Concomitant]
     Route: 065
  23. TEMAZEPAM [Concomitant]
     Route: 065
  24. FAMOTIDINE [Concomitant]
     Route: 065

REACTIONS (24)
  - HEAD INJURY [None]
  - NAUSEA [None]
  - EXCORIATION [None]
  - CONVULSIVE THRESHOLD LOWERED [None]
  - TREMOR [None]
  - DIARRHOEA [None]
  - SERUM SEROTONIN INCREASED [None]
  - ALCOHOL WITHDRAWAL SYNDROME [None]
  - CORONARY ARTERY STENOSIS [None]
  - VOMITING [None]
  - HYPERKALAEMIA [None]
  - TONGUE HAEMORRHAGE [None]
  - DRUG INTERACTION [None]
  - SYNCOPE [None]
  - HYPERHIDROSIS [None]
  - CONTUSION [None]
  - INSOMNIA [None]
  - TONGUE DISORDER [None]
  - ASTHENIA [None]
  - LACERATION [None]
  - CONVULSION [None]
  - DEHYDRATION [None]
  - TONGUE BITING [None]
  - ELECTROCARDIOGRAM ST-T SEGMENT ELEVATION [None]
